FAERS Safety Report 20774026 (Version 1)
Quarter: 2022Q2

REPORT INFORMATION
  Report Type: Spontaneous
  Country: US (occurrence: None)
  Receive Date: 20220429
  Receipt Date: 20220429
  Transmission Date: 20220720
  Serious: Yes (Disabling)
  Sender: FDA-Public Use
  Company Number: None

PATIENT
  Age: 75 Year
  Sex: Male
  Weight: 62.1 kg

DRUGS (3)
  1. POTASSIUM CITRATE [Suspect]
     Active Substance: POTASSIUM CITRATE
     Indication: Renal lithiasis prophylaxis
     Dosage: OTHER QUANTITY : 1 TABLET(S);?FREQUENCY : TWICE A DAY;?
     Route: 048
     Dates: start: 20220411, end: 20220419
  2. Ciclopirox (PENLAC) [Concomitant]
  3. LORATADINE [Concomitant]
     Active Substance: LORATADINE

REACTIONS (6)
  - Urticaria [None]
  - Urticaria [None]
  - Pruritus [None]
  - Skin weeping [None]
  - Blister [None]
  - Scab [None]

NARRATIVE: CASE EVENT DATE: 20220418
